FAERS Safety Report 11662487 (Version 1)
Quarter: 2015Q4

REPORT INFORMATION
  Report Type: Spontaneous
  Country: US (occurrence: US)
  Receive Date: 20151027
  Receipt Date: 20151027
  Transmission Date: 20160304
  Serious: No
  Sender: FDA-Public Use
  Company Number: US-MEDA-2013010001

PATIENT
  Sex: Female

DRUGS (3)
  1. ASTEPRO [Suspect]
     Active Substance: AZELASTINE HYDROCHLORIDE
     Indication: PERENNIAL ALLERGY
     Dates: start: 20120519, end: 201205
  2. XANAX [Suspect]
     Active Substance: ALPRAZOLAM
     Indication: ANXIETY
     Route: 048
  3. DILANTIN [Suspect]
     Active Substance: PHENYTOIN
     Indication: SEIZURE
     Route: 048

REACTIONS (1)
  - Nightmare [Recovered/Resolved]

NARRATIVE: CASE EVENT DATE: 201205
